FAERS Safety Report 17792148 (Version 1)
Quarter: 2020Q2

REPORT INFORMATION
  Report Type: Spontaneous
  Country: GB (occurrence: GB)
  Receive Date: 20200515
  Receipt Date: 20200515
  Transmission Date: 20200714
  Serious: Yes (Hospitalization)
  Sender: FDA-Public Use
  Company Number: GB-MYLANLABS-2020M1048448

PATIENT
  Age: 67 Year
  Sex: Male

DRUGS (15)
  1. VORICONAZOLE. [Suspect]
     Active Substance: VORICONAZOLE
     Indication: PHAEOHYPHOMYCOSIS
     Dosage: 6 MILLIGRAM/KILOGRAM, BID
     Route: 042
     Dates: start: 2014, end: 2014
  2. VORICONAZOLE. [Suspect]
     Active Substance: VORICONAZOLE
     Dosage: 4 MILLIGRAM/KILOGRAM 12 HOURLY
     Route: 042
     Dates: start: 2014
  3. PREDNISOLONE. [Suspect]
     Active Substance: PREDNISOLONE
     Dosage: 7.5 MILLIGRAM, QD
     Route: 065
  4. POSACONAZOLE [Concomitant]
     Active Substance: POSACONAZOLE
     Indication: PHAEOHYPHOMYCOSIS
     Dosage: 300 MILLIGRAM, BID GASTRO-RESISTANT TABLETS; 300MG BID FOR TWO DOSES
     Route: 048
     Dates: start: 2014, end: 2014
  5. TACROLIMUS. [Suspect]
     Active Substance: TACROLIMUS
     Indication: IMMUNOSUPPRESSANT DRUG THERAPY
     Route: 065
     Dates: start: 2014
  6. PREDNISOLONE. [Suspect]
     Active Substance: PREDNISOLONE
     Indication: IMMUNOSUPPRESSANT DRUG THERAPY
     Dosage: 20 MILLIGRAM, QD
     Route: 065
     Dates: start: 2014
  7. FLUCYTOSINE. [Concomitant]
     Active Substance: FLUCYTOSINE
     Indication: PHAEOHYPHOMYCOSIS
     Route: 042
     Dates: start: 2014
  8. AMOXICILLIN. [Concomitant]
     Active Substance: AMOXICILLIN
     Indication: PHAEOHYPHOMYCOSIS
     Dosage: 1 GRAM, Q8H
     Route: 048
     Dates: start: 2014
  9. ALEMTUZUMAB [Suspect]
     Active Substance: ALEMTUZUMAB
     Indication: IMMUNOSUPPRESSANT DRUG THERAPY
     Dosage: 30 MILLIGRAM
     Route: 058
     Dates: start: 2014
  10. POSACONAZOLE [Concomitant]
     Active Substance: POSACONAZOLE
     Dosage: 300 MILLIGRAM, QD
     Route: 048
     Dates: start: 2014
  11. FLUCYTOSINE. [Concomitant]
     Active Substance: FLUCYTOSINE
     Indication: PHAEOHYPHOMYCOSIS
     Dosage: 1.5 GRAM, Q6H
     Route: 048
     Dates: start: 2014
  12. VORICONAZOLE. [Concomitant]
     Active Substance: VORICONAZOLE
     Indication: PHAEOHYPHOMYCOSIS
     Dosage: CEMENT SPACER CONTAINING VORICONAZOLE IN THE RIGHT DISTAL FIBULA
     Route: 042
     Dates: start: 2014
  13. METHYLPREDNISOLONE. [Suspect]
     Active Substance: METHYLPREDNISOLONE
     Indication: IMMUNOSUPPRESSANT DRUG THERAPY
     Dosage: 500 MILLIGRAM
     Route: 042
     Dates: start: 2014
  14. AMPHOTERICIN B, LIPOSOME [Concomitant]
     Active Substance: AMPHOTERICIN B
     Indication: PHAEOHYPHOMYCOSIS
     Dosage: 5 MILLIGRAM/KILOGRAM, QD
     Route: 065
     Dates: start: 2014
  15. POSACONAZOLE [Concomitant]
     Active Substance: POSACONAZOLE
     Indication: PHAEOHYPHOMYCOSIS
     Dosage: 300 MILLIGRAM, QD
     Route: 042
     Dates: start: 2014, end: 2014

REACTIONS (4)
  - Phaeohyphomycosis [Recovered/Resolved with Sequelae]
  - Blood alkaline phosphatase increased [Unknown]
  - Brain abscess [Recovered/Resolved with Sequelae]
  - Enterococcal infection [Recovering/Resolving]
